FAERS Safety Report 12203629 (Version 1)
Quarter: 2016Q1

REPORT INFORMATION
  Report Type: Spontaneous
  Country: US (occurrence: None)
  Receive Date: 20160322
  Receipt Date: 20160322
  Transmission Date: 20160526
  Serious: No
  Sender: FDA-Public Use
  Company Number: None

PATIENT
  Age: 19 Month
  Sex: Male

DRUGS (6)
  1. APLISOL [Suspect]
     Active Substance: TUBERCULIN PURIFIED PROTEIN DERIVATIVE
     Indication: UPPER RESPIRATORY TRACT INFECTION
     Route: 023
     Dates: start: 20160226
  2. PENTACEL [Concomitant]
     Active Substance: DIPHTHERIA AND TETANUS TOXOIDS AND ACELLULAR PERTUSSIS ADSORBED, INACTIVATED POLIOVIRUS AND HAEMOPHILUS B CONJUGATE (TETANUS TOXOID CONJUGATE) VACCINE
     Dates: end: 20160226
  3. HEP A [Concomitant]
     Dates: end: 20160226
  4. PREVNAR [Concomitant]
     Active Substance: PNEUMOCOCCAL 7-VALENT CONJUGATE VACCINE (DIPHTHERIA CRM197 PROTEIN)
     Dates: end: 20160226
  5. FLU [Concomitant]
     Active Substance: INFLUENZA VIRUS VACCINE
  6. HEP B [Concomitant]
     Dates: end: 20160226

REACTIONS (1)
  - Expired product administered [None]
